FAERS Safety Report 5982584-5 (Version None)
Quarter: 2008Q4

REPORT INFORMATION
  Report Type: 
  Country: None (occurrence: None)
  Receive Date: 20081205
  Receipt Date: 20081205
  Transmission Date: 20090506
  Serious: No
  Sender: FDA-Public Use
  Company Number: None

PATIENT
  Age: 65 Year
  Sex: Male
  Weight: 95.2554 kg

DRUGS (2)
  1. THALIDOMIDE [Suspect]
     Indication: MULTIPLE MYELOMA
     Dosage: 3 PILLS DAILY PO
     Route: 048
     Dates: start: 20040401, end: 20050201
  2. DEXAMETHASONE [Suspect]
     Indication: MULTIPLE MYELOMA
     Dosage: 10 PILLS FOR 4 DAYS PO
     Route: 048
     Dates: start: 20040401, end: 20050201

REACTIONS (4)
  - DERMATITIS BULLOUS [None]
  - DISEASE COMPLICATION [None]
  - GAIT DISTURBANCE [None]
  - PERIPHERAL SENSORY NEUROPATHY [None]
